FAERS Safety Report 24293288 (Version 1)
Quarter: 2024Q3

REPORT INFORMATION
  Report Type: Spontaneous
  Country: US (occurrence: None)
  Receive Date: 20240906
  Receipt Date: 20240906
  Transmission Date: 20241016
  Serious: No
  Sender: DOMPE FARMACEUTICI
  Company Number: US-FARMAPROD-202312-3729

PATIENT
  Age: 60 Year
  Sex: Female
  Weight: 78.47 kg

DRUGS (21)
  1. OXERVATE [Suspect]
     Active Substance: CENEGERMIN-BKBJ
     Indication: Neurotrophic keratopathy
     Route: 047
     Dates: start: 20231207
  2. OXERVATE [Suspect]
     Active Substance: CENEGERMIN-BKBJ
  3. OXERVATE [Suspect]
     Active Substance: CENEGERMIN-BKBJ
  4. CITALOPRAM [Concomitant]
     Active Substance: CITALOPRAM\CITALOPRAM HYDROBROMIDE
     Dosage: HYDROBROMIDE
  5. ROSUVASTATIN [Concomitant]
     Active Substance: ROSUVASTATIN\ROSUVASTATIN CALCIUM
  6. GEMFIBROZIL [Concomitant]
     Active Substance: GEMFIBROZIL
  7. XARELTO [Concomitant]
     Active Substance: RIVAROXABAN
  8. ALBUTEROL SULFATE [Concomitant]
     Active Substance: ALBUTEROL SULFATE
  9. ARALAST NP [Concomitant]
     Active Substance: .ALPHA.1-PROTEINASE INHIBITOR HUMAN
     Dosage: 1000 MG VIAL
  10. DILTIAZEM [Concomitant]
     Active Substance: DILTIAZEM
     Dosage: 24 HOURS EXTENDED RELEASE (CD)
  11. VIIBRYD [Concomitant]
     Active Substance: VILAZODONE HYDROCHLORIDE
  12. BENADRYL [Concomitant]
     Active Substance: DIPHENHYDRAMINE HYDROCHLORIDE
  13. DOFETILIDE [Concomitant]
     Active Substance: DOFETILIDE
  14. BUSPIRONE HCL [Concomitant]
     Active Substance: BUSPIRONE HYDROCHLORIDE
  15. CYANOCOBALAMIN [Concomitant]
     Active Substance: CYANOCOBALAMIN
  16. VALACYCLOVIR [Concomitant]
     Active Substance: VALACYCLOVIR HYDROCHLORIDE
  17. LEVOTHYROXINE SODIUM [Concomitant]
     Active Substance: LEVOTHYROXINE SODIUM
  18. FISH OIL [Concomitant]
     Active Substance: FISH OIL
  19. BREO ELLIPTA [Concomitant]
     Active Substance: FLUTICASONE FUROATE\VILANTEROL TRIFENATATE
     Dosage: 100 MCG/25 MCG BLISTERS, WITH DEVICE
  20. AMBIEN [Concomitant]
     Active Substance: ZOLPIDEM TARTRATE
  21. AUTOLOGOUS HUMAN CORNEAL EPITHELIAL CELLS [Concomitant]

REACTIONS (3)
  - Sneezing [Unknown]
  - Photophobia [Unknown]
  - Corneal transplant [Unknown]

NARRATIVE: CASE EVENT DATE: 20231201
